FAERS Safety Report 10691995 (Version 1)
Quarter: 2015Q1

REPORT INFORMATION
  Report Type: Spontaneous
  Country: JP (occurrence: JP)
  Receive Date: 20150106
  Receipt Date: 20150106
  Transmission Date: 20150720
  Serious: Yes (Other)
  Sender: FDA-Public Use
  Company Number: JP-CIPLA LTD.-2014JP02965

PATIENT

DRUGS (2)
  1. ELPAMOTIDE [Suspect]
     Active Substance: ELPAMOTIDE
     Indication: HEPATOBILIARY CANCER
     Dosage: 2.0 MG/ML/BODY ON DAY 1, DAY 8, DAY 15, AND DAY 22
     Route: 058
  2. GEMCITABINE [Suspect]
     Active Substance: GEMCITABINE\GEMCITABINE HYDROCHLORIDE
     Indication: HEPATOBILIARY CANCER
     Dosage: 1000 MG/M2/30 MIN ON DAY 1, DAY 8, AND DAY 15

REACTIONS (1)
  - Interstitial lung disease [Unknown]
